FAERS Safety Report 9247537 (Version 1)
Quarter: 2013Q2

REPORT INFORMATION
  Report Type: Spontaneous
  Country: IL (occurrence: IL)
  Receive Date: 20130423
  Receipt Date: 20130423
  Transmission Date: 20140414
  Serious: Yes (Hospitalization)
  Sender: FDA-Public Use
  Company Number: PHHY2013IL035471

PATIENT
  Age: 30 Year
  Sex: Male

DRUGS (1)
  1. ACLASTA [Suspect]
     Indication: OSTEOPOROSIS
     Dosage: 5 MG/100ML
     Route: 042
     Dates: start: 201211

REACTIONS (11)
  - Motor neurone disease [Unknown]
  - Condition aggravated [Unknown]
  - Feeling cold [Unknown]
  - Enteritis [Unknown]
  - Oesophageal stenosis [Unknown]
  - Syncope [Unknown]
  - Pyrexia [Recovered/Resolved]
  - Bone pain [Unknown]
  - Myalgia [Unknown]
  - Nausea [Unknown]
  - Asthenia [Unknown]
